FAERS Safety Report 20264552 (Version 1)
Quarter: 2021Q4

REPORT INFORMATION
  Report Type: Spontaneous
  Country: US (occurrence: US)
  Receive Date: 20211231
  Receipt Date: 20211231
  Transmission Date: 20220304
  Serious: No
  Sender: FDA-Public Use
  Company Number: US-PFIZER INC-202101844018

PATIENT
  Age: 70 Year
  Sex: Female

DRUGS (1)
  1. IBRANCE [Suspect]
     Active Substance: PALBOCICLIB
     Dosage: 125 MG, CYCLIC (DAILY X 21 DAYS)
     Route: 048
     Dates: start: 2019

REACTIONS (3)
  - Dyspnoea [Unknown]
  - Herpes zoster [Recovering/Resolving]
  - Ear deformity acquired [Recovering/Resolving]

NARRATIVE: CASE EVENT DATE: 20190101
